FAERS Safety Report 13567454 (Version 1)
Quarter: 2017Q2

REPORT INFORMATION
  Report Type: Spontaneous
  Country: US (occurrence: US)
  Receive Date: 20170522
  Receipt Date: 20170522
  Transmission Date: 20170830
  Serious: No
  Sender: FDA-Public Use
  Company Number: US-PFIZER INC-2017220049

PATIENT
  Age: 42 Year
  Sex: Male

DRUGS (1)
  1. SUTENT [Suspect]
     Active Substance: SUNITINIB MALATE
     Indication: RENAL CANCER
     Dosage: 50 MG, CYCLIC (1 CAPSULE BY MOUTH DAILY FOR 4 WEEKS THEN 2 WEEKS OFF)
     Route: 048
     Dates: start: 20170419

REACTIONS (2)
  - Dysgeusia [Unknown]
  - Constipation [Recovered/Resolved]
